FAERS Safety Report 9346316 (Version 3)
Quarter: 2013Q3

REPORT INFORMATION
  Report Type: Spontaneous
  Country: JP (occurrence: JP)
  Receive Date: 20130613
  Receipt Date: 20130702
  Transmission Date: 20140515
  Serious: Yes (Hospitalization)
  Sender: FDA-Public Use
  Company Number: JP-ELI_LILLY_AND_COMPANY-JP201306001085

PATIENT
  Age: 52 Year
  Sex: Male
  Weight: 68 kg

DRUGS (8)
  1. CYMBALTA [Suspect]
     Indication: DIABETIC NEUROPATHY
     Dosage: 20 MG, QD
     Route: 048
     Dates: start: 20130430, end: 20130506
  2. CYMBALTA [Suspect]
     Dosage: 40 MG, QD
     Route: 048
     Dates: start: 20130507, end: 20130514
  3. EQUA [Suspect]
     Indication: TYPE 2 DIABETES MELLITUS
     Dosage: 50 MG, BID
     Route: 048
     Dates: start: 20130328, end: 20130521
  4. RASENAZOLIN [Concomitant]
     Indication: CELLULITIS
     Dosage: 2 G, BID
     Route: 042
     Dates: start: 20130423, end: 20130501
  5. RASENAZOLIN [Concomitant]
     Indication: ABSCESS LIMB
  6. LANTUS [Concomitant]
     Indication: TYPE 2 DIABETES MELLITUS
     Dosage: UNK, QD
     Route: 058
     Dates: start: 20130328
  7. NOVORAPID [Concomitant]
     Indication: TYPE 2 DIABETES MELLITUS
     Dosage: UNK, TID
     Route: 058
     Dates: start: 20130423, end: 20130607
  8. VOLTAREN                           /00372302/ [Concomitant]
     Indication: DIABETIC NEUROPATHY
     Dosage: 25 MG, PRN
     Route: 054
     Dates: start: 20130423

REACTIONS (1)
  - Eosinophilia [Recovering/Resolving]
